FAERS Safety Report 20470794 (Version 1)
Quarter: 2022Q1

REPORT INFORMATION
  Report Type: Spontaneous
  Country: US (occurrence: US)
  Receive Date: 20220214
  Receipt Date: 20220214
  Transmission Date: 20220424
  Serious: No
  Sender: FDA-Public Use
  Company Number: US-KALA PHARAMACEUTICALS-2021KLA00121

PATIENT
  Age: 63 Year
  Sex: Female
  Weight: 71.655 kg

DRUGS (2)
  1. EYSUVIS [Suspect]
     Active Substance: LOTEPREDNOL ETABONATE
     Indication: Dry eye
     Dosage: 1 DROP, 4X/DAY IN EACH EYE
     Route: 047
     Dates: start: 20211129, end: 20211202
  2. EYSUVIS [Suspect]
     Active Substance: LOTEPREDNOL ETABONATE
     Dosage: 1 DROP, 4X/DAY IN EACH EYE
     Route: 047
     Dates: start: 20211203

REACTIONS (4)
  - Foreign body in eye [Recovering/Resolving]
  - Lacrimation disorder [Recovered/Resolved]
  - Swelling of eyelid [Recovered/Resolved]
  - Eye pain [Recovered/Resolved]

NARRATIVE: CASE EVENT DATE: 20211202
